FAERS Safety Report 18031200 (Version 1)
Quarter: 2020Q3

REPORT INFORMATION
  Report Type: Spontaneous
  Country: DE (occurrence: DE)
  Receive Date: 20200716
  Receipt Date: 20200716
  Transmission Date: 20201103
  Serious: Yes (Congenital Anomaly, Other)
  Sender: FDA-Public Use
  Company Number: NVSC2020DE185821

PATIENT
  Age: 1 Day
  Sex: Male
  Weight: 3.52 kg

DRUGS (2)
  1. LAMOTRIGINE. [Suspect]
     Active Substance: LAMOTRIGINE
     Indication: FOETAL EXPOSURE DURING PREGNANCY
     Dosage: MATERNAL DOSE: 300 [MG/D (MAX.) ]/ EXPOSURE TIME: CONFLICTING STATEMENTS, BEGIN EITHER IN 4/2019 OR
     Route: 064
     Dates: start: 20190415, end: 20200201
  2. L?THYROXINE [Concomitant]
     Active Substance: LEVOTHYROXINE
     Indication: FOETAL EXPOSURE DURING PREGNANCY
     Dosage: MATERNAL DOSE: 25 [?G/D ]
     Route: 064
     Dates: start: 20190420, end: 20200201

REACTIONS (4)
  - Myoclonus [Recovered/Resolved]
  - Atrial septal defect [Unknown]
  - Congenital mitral valve incompetence [Recovering/Resolving]
  - Foetal exposure during pregnancy [Unknown]

NARRATIVE: CASE EVENT DATE: 20200201
